FAERS Safety Report 18877312 (Version 1)
Quarter: 2021Q1

REPORT INFORMATION
  Report Type: Spontaneous
  Country: US (occurrence: US)
  Receive Date: 20210210
  Receipt Date: 20210210
  Transmission Date: 20210420
  Serious: Yes (Hospitalization)
  Sender: FDA-Public Use
  Company Number: None

PATIENT
  Age: 64 Year
  Sex: Male
  Weight: 96 kg

DRUGS (1)
  1. EMPAGLIFLOZIN (EMPAGLIFLOZIN 25MG TAB) [Suspect]
     Active Substance: EMPAGLIFLOZIN
     Indication: DIABETES MELLITUS
     Route: 048
     Dates: start: 20190910, end: 20191231

REACTIONS (17)
  - Self-medication [None]
  - Dysuria [None]
  - Pollakiuria [None]
  - Fatigue [None]
  - Blood urine [None]
  - White blood cells urine [None]
  - Blood glucose increased [None]
  - Penile discomfort [None]
  - Klebsiella infection [None]
  - Leukocytosis [None]
  - Tachycardia [None]
  - Urine ketone body present [None]
  - Infection [None]
  - Glycosuria [None]
  - Urinary tract infection [None]
  - Asthenia [None]
  - Glycosylated haemoglobin increased [None]

NARRATIVE: CASE EVENT DATE: 20200102
